FAERS Safety Report 7905429-2 (Version None)
Quarter: 2011Q4

REPORT INFORMATION
  Report Type: 
  Country: None (occurrence: None)
  Receive Date: 20111109
  Receipt Date: 20111027
  Transmission Date: 20120403
  Serious: Yes (Hospitalization)
  Sender: FDA-Public Use
  Company Number: FR-MYLANLABS-2011S1022675

PATIENT
  Age: 54 Year
  Sex: Female

DRUGS (5)
  1. CITALOPRAM HYDROBROMIDE [Suspect]
     Indication: OVERDOSE
     Route: 048
  2. CITALOPRAM HYDROBROMIDE [Suspect]
     Indication: MAJOR DEPRESSION
     Route: 048
  3. ZOPICLONE [Concomitant]
     Indication: MAJOR DEPRESSION
     Dosage: 7.5 MG/DAY
     Route: 065
  4. CITALOPRAM HYDROBROMIDE [Suspect]
     Dosage: 20 MG/DAY
     Route: 065
  5. CITALOPRAM HYDROBROMIDE [Suspect]
     Dosage: 20 MG/DAY
     Route: 065

REACTIONS (9)
  - HYPOKALAEMIA [None]
  - ELECTROCARDIOGRAM QT PROLONGED [None]
  - INTENTIONAL OVERDOSE [None]
  - VENTRICULAR FIBRILLATION [None]
  - HYPERLACTACIDAEMIA [None]
  - ALTERED STATE OF CONSCIOUSNESS [None]
  - METABOLIC ACIDOSIS [None]
  - CONVULSION [None]
  - HYPOTENSION [None]
